FAERS Safety Report 25799628 (Version 2)
Quarter: 2025Q4

REPORT INFORMATION
  Report Type: Spontaneous
  Country: EU (occurrence: EU)
  Receive Date: 20250914
  Receipt Date: 20251106
  Transmission Date: 20260117
  Serious: Yes (Hospitalization, Other)
  Sender: AUROBINDO
  Company Number: EU-MLMSERVICE-20250829-PI629270-00030-1

PATIENT
  Age: 7 Year
  Sex: Female

DRUGS (2)
  1. IBUPROFEN [Suspect]
     Active Substance: IBUPROFEN
     Indication: Hyperpyrexia
     Dosage: 1 DOSAGE FORM 1 TOTAL SINGLE DOSE
     Route: 065
  2. ACETAMINOPHEN [Concomitant]
     Active Substance: ACETAMINOPHEN
     Indication: Hyperpyrexia
     Dosage: UNK
     Route: 065

REACTIONS (4)
  - Haemolytic anaemia [Recovering/Resolving]
  - Acute kidney injury [Recovered/Resolved]
  - Methaemoglobinaemia [Recovered/Resolved]
  - Hyperferritinaemia [Recovering/Resolving]
